FAERS Safety Report 20953880 (Version 1)
Quarter: 2022Q2

REPORT INFORMATION
  Report Type: Report from Study
  Country: CA (occurrence: CA)
  Receive Date: 20220614
  Receipt Date: 20220614
  Transmission Date: 20220721
  Serious: Yes (Other)
  Sender: FDA-Public Use
  Company Number: CA-CELLTRION INC.-2022CA009048

PATIENT

DRUGS (1)
  1. TRUXIMA [Suspect]
     Active Substance: RITUXIMAB-ABBS
     Indication: Rheumatoid arthritis
     Dosage: 1000 MG (PATIENT^S LAST INFUSION ON 29 NOV 2021)
     Route: 042
     Dates: start: 20210322

REACTIONS (3)
  - Rheumatoid arthritis [Not Recovered/Not Resolved]
  - Pain [Not Recovered/Not Resolved]
  - Fatigue [Not Recovered/Not Resolved]
